FAERS Safety Report 11576737 (Version 1)
Quarter: 2015Q3

REPORT INFORMATION
  Report Type: Spontaneous
  Country: US (occurrence: None)
  Receive Date: 20150930
  Receipt Date: 20150930
  Transmission Date: 20151125
  Serious: No
  Sender: FDA-Public Use
  Company Number: None

PATIENT
  Age: 25 Year
  Sex: Female
  Weight: 54.43 kg

DRUGS (1)
  1. RU-486 DANCO LABORATORY [Suspect]
     Active Substance: MIFEPRISTONE
     Indication: ABORTION

REACTIONS (3)
  - Diarrhoea [None]
  - Pain [None]
  - Dumping syndrome [None]

NARRATIVE: CASE EVENT DATE: 20150902
